FAERS Safety Report 22017483 (Version 1)
Quarter: 2023Q1

REPORT INFORMATION
  Report Type: Spontaneous
  Country: US (occurrence: None)
  Receive Date: 20230217
  Receipt Date: 20230217
  Transmission Date: 20230418
  Serious: No
  Sender: FDA-Public Use
  Company Number: None

PATIENT
  Sex: Female
  Weight: 119.29 kg

DRUGS (12)
  1. IBRANCE [Suspect]
     Active Substance: PALBOCICLIB
     Indication: Breast cancer female
     Dosage: FREQUENCY : DAILY;?
     Route: 048
  2. ALBUTEROL [Concomitant]
     Active Substance: ALBUTEROL
  3. ALEVE [Concomitant]
     Active Substance: NAPROXEN SODIUM
  4. ANASTROZOLE [Concomitant]
     Active Substance: ANASTROZOLE
  5. Aspinn [Concomitant]
  6. CALCIUM [Concomitant]
  7. GLIPIZIDE [Concomitant]
     Active Substance: GLIPIZIDE
  8. LANTUS [Concomitant]
     Active Substance: INSULIN GLARGINE
  9. Stiolto [Concomitant]
  10. Respimat [Concomitant]
  11. TYLENOL [Concomitant]
     Active Substance: ACETAMINOPHEN
  12. WARFARIN [Concomitant]
     Active Substance: WARFARIN

REACTIONS (2)
  - Therapy change [None]
  - Full blood count abnormal [None]
